FAERS Safety Report 7967313-8 (Version None)
Quarter: 2011Q4

REPORT INFORMATION
  Report Type: 
  Country: None (occurrence: None)
  Receive Date: 20111209
  Receipt Date: 20111201
  Transmission Date: 20120403
  Serious: Yes (Other)
  Sender: FDA-Public Use
  Company Number: US-JNJFOC-20111202260

PATIENT
  Sex: Female
  Weight: 54.89 kg

DRUGS (3)
  1. RETIN-A MICRO [Suspect]
     Indication: ACNE
     Route: 061
  2. LIALDA [Concomitant]
     Indication: CROHN'S DISEASE
     Route: 065
     Dates: start: 20091101
  3. IMURAN [Concomitant]
     Indication: CROHN'S DISEASE
     Route: 065
     Dates: start: 20101201

REACTIONS (2)
  - CONDITION AGGRAVATED [None]
  - CROHN'S DISEASE [None]
